FAERS Safety Report 9036928 (Version 1)
Quarter: 2013Q1

REPORT INFORMATION
  Report Type: Spontaneous
  Country: US (occurrence: None)
  Receive Date: 20130118
  Receipt Date: 20130118
  Transmission Date: 20140127
  Serious: Yes (Other)
  Sender: FDA-Public Use
  Company Number: None

PATIENT
  Age: 41 Year
  Sex: Male

DRUGS (1)
  1. ENBREL SURECLICK [Suspect]
     Indication: SACROILIITIS
     Route: 058
     Dates: start: 20121116

REACTIONS (4)
  - Headache [None]
  - Fatigue [None]
  - Dizziness [None]
  - Loss of consciousness [None]
